FAERS Safety Report 16882740 (Version 4)
Quarter: 2019Q4

REPORT INFORMATION
  Report Type: Report from Study
  Country: None (occurrence: US)
  Receive Date: 20191003
  Receipt Date: 20191227
  Transmission Date: 20200122
  Serious: Yes (Hospitalization)
  Sender: FDA-Public Use
  Company Number: US-ABBVIE-19K-163-2880137-00

PATIENT
  Age: 37 Year
  Sex: Male
  Weight: 66.28 kg

DRUGS (5)
  1. HUMIRA [Suspect]
     Active Substance: ADALIMUMAB
     Indication: CROHN^S DISEASE
     Dosage: DAY 15
     Route: 058
     Dates: start: 20190815, end: 20190815
  2. PREDNISONE. [Concomitant]
     Active Substance: PREDNISONE
     Indication: PRODUCT USED FOR UNKNOWN INDICATION
  3. HUMIRA [Suspect]
     Active Substance: ADALIMUMAB
     Indication: COLITIS ULCERATIVE
     Route: 058
     Dates: start: 20190829
  4. HUMIRA [Suspect]
     Active Substance: ADALIMUMAB
     Indication: CROHN^S DISEASE
  5. HUMIRA [Suspect]
     Active Substance: ADALIMUMAB
     Indication: COLITIS ULCERATIVE
     Dosage: DAY 1
     Route: 058
     Dates: start: 20190801, end: 20190801

REACTIONS (36)
  - Clostridium difficile infection [Recovering/Resolving]
  - Loss of personal independence in daily activities [Not Recovered/Not Resolved]
  - Intraocular pressure increased [Unknown]
  - Adverse food reaction [Unknown]
  - Middle insomnia [Not Recovered/Not Resolved]
  - Anger [Not Recovered/Not Resolved]
  - Renal pain [Unknown]
  - Abdominal pain [Not Recovered/Not Resolved]
  - Crohn^s disease [Recovered/Resolved]
  - Colitis ulcerative [Recovered/Resolved]
  - Nausea [Unknown]
  - Abdominal discomfort [Unknown]
  - Diarrhoea [Recovering/Resolving]
  - Rectal spasm [Not Recovered/Not Resolved]
  - Starvation [Unknown]
  - Inflammation [Not Recovered/Not Resolved]
  - Clostridium test positive [Recovered/Resolved]
  - Flatulence [Unknown]
  - Anxiety [Not Recovered/Not Resolved]
  - Diarrhoea [Recovering/Resolving]
  - Depressed mood [Unknown]
  - Frequent bowel movements [Unknown]
  - Psychiatric symptom [Not Recovered/Not Resolved]
  - Insomnia [Recovering/Resolving]
  - Rectal haemorrhage [Recovering/Resolving]
  - Nephrolithiasis [Recovering/Resolving]
  - Frequent bowel movements [Recovering/Resolving]
  - Flatulence [Not Recovered/Not Resolved]
  - Colitis ulcerative [Unknown]
  - Diarrhoea haemorrhagic [Recovered/Resolved]
  - Vomiting [Unknown]
  - Decreased appetite [Unknown]
  - Defaecation urgency [Not Recovered/Not Resolved]
  - Weight decreased [Unknown]
  - Drug ineffective [Unknown]
  - Paranasal sinus hypersecretion [Unknown]

NARRATIVE: CASE EVENT DATE: 2019
